FAERS Safety Report 18775229 (Version 2)
Quarter: 2021Q1

REPORT INFORMATION
  Report Type: Spontaneous
  Country: JP (occurrence: JP)
  Receive Date: 20210122
  Receipt Date: 20210205
  Transmission Date: 20210419
  Serious: Yes (Hospitalization)
  Sender: FDA-Public Use
  Company Number: JP-ELI_LILLY_AND_COMPANY-JP202101006148

PATIENT
  Age: 72 Year
  Sex: Male

DRUGS (2)
  1. TRULICITY [Suspect]
     Active Substance: DULAGLUTIDE
     Indication: TYPE 2 DIABETES MELLITUS
     Dosage: 0.75 MG
     Route: 058
     Dates: start: 20201117, end: 20210109
  2. SUREPOST [Concomitant]
     Active Substance: REPAGLINIDE
     Dosage: 0.125MG IN THE MORNING, 0.25MG ON THE LUNCH AND IN THE EVENING
     Dates: start: 20201118, end: 20210109

REACTIONS (3)
  - Bradycardia [Unknown]
  - Cholangitis [Recovered/Resolved]
  - Hypotension [Unknown]

NARRATIVE: CASE EVENT DATE: 20210109
